FAERS Safety Report 23391370 (Version 1)
Quarter: 2024Q1

REPORT INFORMATION
  Report Type: Spontaneous
  Country: US (occurrence: None)
  Receive Date: 20240110
  Receipt Date: 20240110
  Transmission Date: 20240410
  Serious: No
  Sender: FDA-Public Use
  Company Number: None

PATIENT
  Age: 80 Year
  Sex: Female

DRUGS (1)
  1. CYCLOPHOSPHAMIDE [Suspect]
     Active Substance: CYCLOPHOSPHAMIDE
     Indication: Chronic leukaemia
     Dosage: FREQUENCY : DAILY;?
     Route: 048
     Dates: start: 20231023

REACTIONS (8)
  - Therapy interrupted [None]
  - Illness [None]
  - Nausea [None]
  - Vomiting [None]
  - Diarrhoea [None]
  - White blood cell count decreased [None]
  - Haemoglobin decreased [None]
  - Transfusion [None]

NARRATIVE: CASE EVENT DATE: 20240110
